FAERS Safety Report 12801012 (Version 1)
Quarter: 2016Q4

REPORT INFORMATION
  Report Type: Report from Study
  Country: US (occurrence: US)
  Receive Date: 20161003
  Receipt Date: 20161003
  Transmission Date: 20170207
  Serious: Yes (Hospitalization, Other)
  Sender: FDA-Public Use
  Company Number: US-ROCHE-1305221

PATIENT
  Age: 65 Year
  Sex: Female
  Weight: 76.8 kg

DRUGS (9)
  1. CARBOPLATIN. [Suspect]
     Active Substance: CARBOPLATIN
     Indication: ENDOMETRIAL CANCER
     Dosage: AUC 5 IV OVER 30 MINUTES ON DAY 1 AND 6 CYCLES
     Route: 042
     Dates: start: 20110330, end: 20110824
  2. BEVACIZUMAB [Suspect]
     Active Substance: BEVACIZUMAB
     Indication: ENDOMETRIAL CANCER
     Dosage: 15 MG/KG IV OVER 30-90 MINUTES ON DAY 1 AND 6 CYCLES
     Route: 042
     Dates: start: 20110330
  3. IXABEPILONE [Suspect]
     Active Substance: IXABEPILONE
     Dosage: 13/JUL/2011
     Route: 042
     Dates: start: 20110622
  4. BEVACIZUMAB [Suspect]
     Active Substance: BEVACIZUMAB
     Dosage: 11/MAY/2011, 01/JUN/2011
     Route: 042
     Dates: start: 20110420, end: 20110824
  5. MS CONTIN [Concomitant]
     Active Substance: MORPHINE SULFATE
  6. IXABEPILONE [Suspect]
     Active Substance: IXABEPILONE
     Dosage: 11/MAY/2011, 01/JUN/2011,
     Route: 042
     Dates: start: 20110420
  7. IXABEPILONE [Suspect]
     Active Substance: IXABEPILONE
     Route: 042
     Dates: start: 20110824
  8. IXABEPILONE [Suspect]
     Active Substance: IXABEPILONE
     Indication: ENDOMETRIAL CANCER
     Dosage: 25 MG/M2 IV OVER 1 HR ON DAY 1 AND 6 CYCLES
     Route: 042
     Dates: start: 20110330, end: 20110824
  9. BEVACIZUMAB [Suspect]
     Active Substance: BEVACIZUMAB
     Dosage: 13/JUL/2011, 03/AUG/2011
     Route: 042
     Dates: start: 20110622

REACTIONS (5)
  - Hypokalaemia [Recovered/Resolved]
  - White blood cell count decreased [Unknown]
  - Anaemia [Unknown]
  - Neutrophil count decreased [Unknown]
  - Platelet count decreased [Unknown]

NARRATIVE: CASE EVENT DATE: 20110504
